FAERS Safety Report 20623367 (Version 1)
Quarter: 2022Q1

REPORT INFORMATION
  Report Type: Spontaneous
  Country: US (occurrence: None)
  Receive Date: 20220322
  Receipt Date: 20220322
  Transmission Date: 20220423
  Serious: Yes (Hospitalization)
  Sender: FDA-Public Use
  Company Number: None

PATIENT
  Age: 6 Year
  Sex: Male

DRUGS (1)
  1. QUINIDINE SULFATE [Suspect]
     Active Substance: QUINIDINE SULFATE

REACTIONS (9)
  - Product dispensing error [None]
  - Nausea [None]
  - Vomiting [None]
  - Headache [None]
  - Ventricular fibrillation [None]
  - Drug level increased [None]
  - Incorrect dose administered [None]
  - Product dispensing error [None]
  - Product preparation error [None]
